FAERS Safety Report 9204355 (Version 1)
Quarter: 2013Q2

REPORT INFORMATION
  Report Type: Report from Study
  Country: DE (occurrence: DE)
  Receive Date: 20130402
  Receipt Date: 20130402
  Transmission Date: 20140414
  Serious: Yes (Other)
  Sender: FDA-Public Use
  Company Number: DE-ROCHE-1208043

PATIENT
  Age: 47 Year
  Sex: Female

DRUGS (1)
  1. INTERFERON ALFA-2A [Suspect]
     Indication: HEPATITIS B
     Route: 065

REACTIONS (5)
  - Aggression [Unknown]
  - Disturbance in attention [Unknown]
  - Paranoia [Unknown]
  - Alopecia [Unknown]
  - Eating disorder [Unknown]
